FAERS Safety Report 6801466-X (Version None)
Quarter: 2010Q2

REPORT INFORMATION
  Report Type: 
  Country: None (occurrence: None)
  Receive Date: 20100629
  Receipt Date: 20100621
  Transmission Date: 20101027
  Serious: Yes (Hospitalization)
  Sender: FDA-Public Use
  Company Number: US-ROCHE-710969

PATIENT
  Sex: Female

DRUGS (2)
  1. MYCOPHENOLATE MOFETIL [Suspect]
     Indication: DRUG USE FOR UNKNOWN INDICATION
     Route: 065
     Dates: start: 20091228
  2. MYCOPHENOLATE MOFETIL [Suspect]
     Dosage: DOSE WAS REDUCED
     Route: 065
     Dates: start: 20100617

REACTIONS (1)
  - CEREBROVASCULAR ACCIDENT [None]
